FAERS Safety Report 19353021 (Version 4)
Quarter: 2021Q2

REPORT INFORMATION
  Report Type: Report from Study
  Country: CN (occurrence: CN)
  Receive Date: 20210601
  Receipt Date: 20210625
  Transmission Date: 20210717
  Serious: Yes (Life-Threatening, Hospitalization)
  Sender: FDA-Public Use
  Company Number: CN-ASTRAZENECA-2021A462012

PATIENT
  Age: 18341 Day
  Sex: Female

DRUGS (12)
  1. PEMETREXED. [Suspect]
     Active Substance: PEMETREXED
     Indication: NON-SMALL CELL LUNG CANCER
     Route: 042
     Dates: start: 20210513, end: 20210513
  2. RECOMBINANT HUMAN GRANULOCYTE COLONY?STIM ULATING FACTOR [Concomitant]
     Indication: NEUTROPHIL COUNT DECREASED
     Route: 058
     Dates: start: 20210521
  3. OSIMERTINIB. [Suspect]
     Active Substance: OSIMERTINIB
     Indication: NON-SMALL CELL LUNG CANCER
     Route: 048
     Dates: start: 20210513, end: 20210518
  4. RECOMBINANT HUMANTHRO MBOPOIETIN OPENIA INJECTION [Concomitant]
     Indication: THROMBOCYTOPENIA
     Dosage: 15000 U DAILY
     Route: 058
     Dates: start: 20210521
  5. OSIMERTINIB. [Suspect]
     Active Substance: OSIMERTINIB
     Indication: NON-SMALL CELL LUNG CANCER
     Route: 048
     Dates: start: 20210509, end: 20210512
  6. CARBOPLATIN. [Suspect]
     Active Substance: CARBOPLATIN
     Indication: NON-SMALL CELL LUNG CANCER
     Dosage: 5 AUC
     Route: 042
     Dates: start: 20210420, end: 20210420
  7. CARBOPLATIN. [Suspect]
     Active Substance: CARBOPLATIN
     Indication: NON-SMALL CELL LUNG CANCER
     Dosage: 5 AUC
     Route: 042
     Dates: start: 20210513, end: 20210513
  8. PEMETREXED. [Suspect]
     Active Substance: PEMETREXED
     Indication: NON-SMALL CELL LUNG CANCER
     Route: 042
     Dates: start: 20210420, end: 20210420
  9. LEUCOGEN [Concomitant]
     Active Substance: LEUCOGEN
     Indication: PLATELET COUNT
     Route: 048
     Dates: start: 20210507
  10. OSIMERTINIB. [Suspect]
     Active Substance: OSIMERTINIB
     Indication: NON-SMALL CELL LUNG CANCER
     Route: 048
     Dates: start: 20210420, end: 20210426
  11. OSIMERTINIB. [Suspect]
     Active Substance: OSIMERTINIB
     Indication: NON-SMALL CELL LUNG CANCER
     Route: 048
     Dates: start: 20210428, end: 20210505
  12. CEFOPERAZONE SODIUM AND NEUTROPENI SULBACTAM SODIUM FOR INJECTION [Concomitant]
     Indication: PYREXIA
     Dosage: 15000 U DAILY
     Route: 058
     Dates: start: 20210521

REACTIONS (3)
  - Platelet count decreased [Recovered/Resolved]
  - Febrile neutropenia [Recovered/Resolved]
  - White blood cell count decreased [Recovered/Resolved]

NARRATIVE: CASE EVENT DATE: 20210427
